FAERS Safety Report 11106487 (Version 2)
Quarter: 2015Q2

REPORT INFORMATION
  Report Type: Spontaneous
  Country: IT (occurrence: IT)
  Receive Date: 20150508
  Receipt Date: 20150609
  Transmission Date: 20150821
  Serious: Yes (Hospitalization)
  Sender: FDA-Public Use
  Company Number: 2848533

PATIENT
  Age: 75 Year
  Sex: Male
  Weight: 65 kg

DRUGS (10)
  1. INVESTIGATIONAL DRUG [Concomitant]
     Active Substance: INVESTIGATIONAL PRODUCT
     Indication: MYELODYSPLASTIC SYNDROME
     Route: 048
  2. MYCOSTATIN [Concomitant]
     Active Substance: NYSTATIN
     Indication: PRODUCT USED FOR UNKNOWN INDICATION
     Route: 048
     Dates: start: 20141220, end: 20150327
  3. CIPROFLOXACIN. [Suspect]
     Active Substance: CIPROFLOXACIN
     Indication: PYREXIA
     Dosage: DAILY
     Route: 048
     Dates: start: 20150319, end: 20150327
  4. PREDNISONE. [Concomitant]
     Active Substance: PREDNISONE
     Indication: MYELODYSPLASTIC SYNDROME
     Route: 048
     Dates: start: 20150130, end: 20150327
  5. BISOPROLOL FUMARATE. [Concomitant]
     Active Substance: BISOPROLOL FUMARATE
     Indication: ESSENTIAL HYPERTENSION
     Route: 048
  6. CALCITRIOL. [Concomitant]
     Active Substance: CALCITRIOL
     Indication: SUPPORTIVE CARE
     Dosage: 1187 DAYS
     Route: 048
     Dates: start: 20120101, end: 20150401
  7. SULFAMETHOXAZOLE AND TRIMETHOPRIM [Concomitant]
     Active Substance: SULFAMETHOXAZOLE\TRIMETHOPRIM
     Indication: PROPHYLAXIS
     Route: 048
  8. EPOETIN ZETA [Concomitant]
     Active Substance: ERYTHROPOIETIN
     Indication: SUPPORTIVE CARE
     Route: 058
     Dates: start: 20131010, end: 20150326
  9. CEFTRIAXONE SODIUM. [Suspect]
     Active Substance: CEFTRIAXONE SODIUM
     Indication: PYREXIA
     Dosage: DAILY
     Route: 042
     Dates: start: 20150321, end: 20150327
  10. ACICLOVIR [Concomitant]
     Active Substance: ACYCLOVIR
     Indication: PROPHYLAXIS
     Dosage: 1187 DAYS
     Route: 048
     Dates: start: 20120101, end: 20150401

REACTIONS (4)
  - Cough [Unknown]
  - Hyperpyrexia [Recovering/Resolving]
  - Hypertransaminasaemia [Unknown]
  - Neutropenia [Unknown]

NARRATIVE: CASE EVENT DATE: 20150320
